FAERS Safety Report 17484510 (Version 2)
Quarter: 2020Q1

REPORT INFORMATION
  Report Type: Spontaneous
  Country: GB (occurrence: GB)
  Receive Date: 20200302
  Receipt Date: 20200331
  Transmission Date: 20200409
  Serious: Yes (Hospitalization, Other)
  Sender: FDA-Public Use
  Company Number: GB-BAYER-2020-031513

PATIENT
  Age: 51 Year
  Sex: Female

DRUGS (2)
  1. MIRENA [Suspect]
     Active Substance: LEVONORGESTREL
     Dosage: 20?G PER DAY, CONT
     Route: 015
     Dates: start: 2007
  2. MIRENA [Suspect]
     Active Substance: LEVONORGESTREL
     Dosage: 20?G PER DAY, CONT
     Route: 015
     Dates: start: 2008

REACTIONS (5)
  - Intraductal proliferative breast lesion [None]
  - Complication of device removal [None]
  - Device use issue [None]
  - Device use issue [None]
  - Uterine cervix stenosis [None]

NARRATIVE: CASE EVENT DATE: 2008
